FAERS Safety Report 8559679-5 (Version None)
Quarter: 2012Q3

REPORT INFORMATION
  Report Type: 
  Country: None (occurrence: None)
  Receive Date: 20120802
  Receipt Date: 20120725
  Transmission Date: 20120928
  Serious: Yes (Other)
  Sender: FDA-Public Use
  Company Number: US-ASTELLAS-2012US006494

PATIENT

DRUGS (3)
  1. ANTIDEPRESSANTS [Suspect]
     Indication: DEPRESSION
     Dosage: UNK
     Route: 065
  2. LYRICA [Suspect]
     Indication: FIBROMYALGIA
     Dosage: 25 MG, BID
     Route: 048
     Dates: start: 20120601
  3. VESICARE [Suspect]
     Indication: BLADDER DISORDER
     Dosage: UNK
     Route: 048
     Dates: start: 20120101, end: 20120101

REACTIONS (8)
  - SUICIDAL IDEATION [None]
  - OEDEMA PERIPHERAL [None]
  - THERAPEUTIC RESPONSE UNEXPECTED [None]
  - WEIGHT INCREASED [None]
  - FATIGUE [None]
  - PAIN [None]
  - VISION BLURRED [None]
  - DISTURBANCE IN ATTENTION [None]
